FAERS Safety Report 9669313 (Version 4)
Quarter: 2015Q1

REPORT INFORMATION
  Report Type: Spontaneous
  Country: FR (occurrence: FR)
  Receive Date: 20131105
  Receipt Date: 20150119
  Transmission Date: 20150721
  Serious: Yes (Hospitalization)
  Sender: FDA-Public Use
  Company Number: FR-ASTRAZENECA-2013SE79629

PATIENT
  Age: 39 Year
  Sex: Male

DRUGS (9)
  1. VANCOMYCINE [Suspect]
     Active Substance: VANCOMYCIN
     Dosage: DAILY
     Route: 042
     Dates: start: 20130508, end: 20130624
  2. ZOPHEREN [Suspect]
     Active Substance: ONDANSETRON HYDROCHLORIDE
     Route: 065
  3. INEXIUM [Suspect]
     Active Substance: ESOMEPRAZOLE
     Dosage: DAILY
     Route: 048
     Dates: start: 20130410, end: 20130624
  4. AZACTAM [Suspect]
     Active Substance: AZTREONAM
     Dosage: DAILY
     Route: 042
     Dates: start: 20130607, end: 20130624
  5. CANCIDAS [Suspect]
     Active Substance: CASPOFUNGIN ACETATE
     Dosage: DAILY
     Route: 042
     Dates: start: 201305
  6. XENETIX [Suspect]
     Active Substance: IOBITRIDOL
     Route: 065
  7. IOMERON [Suspect]
     Active Substance: IOMEPROL
     Route: 065
  8. TIENAM [Suspect]
     Active Substance: CILASTATIN SODIUM\IMIPENEM
     Dosage: DAILY
     Route: 042
     Dates: start: 20130526, end: 20130607
  9. TAZOCILLINE [Suspect]
     Active Substance: PIPERACILLIN SODIUM\TAZOBACTAM SODIUM
     Dosage: DAILY
     Route: 042
     Dates: start: 20130508, end: 20130526

REACTIONS (3)
  - Peritonitis [Unknown]
  - Liver injury [None]
  - Drug reaction with eosinophilia and systemic symptoms [Recovered/Resolved]

NARRATIVE: CASE EVENT DATE: 20130412
